FAERS Safety Report 4586169-7 (Version None)
Quarter: 2005Q1

REPORT INFORMATION
  Report Type: 
  Country: None (occurrence: None)
  Receive Date: 20050125
  Receipt Date: 20041018
  Transmission Date: 20050727
  Serious: No
  Sender: FDA-Public Use
  Company Number: USA041081543

PATIENT
  Age: 77 Year
  Sex: Female
  Weight: 47 kg

DRUGS (2)
  1. FORTEO [Suspect]
     Indication: OSTEOPOROSIS
     Dosage: 20 UG/L DAY
     Dates: start: 20031201
  2. CALCIUM GLUCONATE [Concomitant]

REACTIONS (6)
  - ANOREXIA [None]
  - ARTHRITIS [None]
  - INJECTION SITE DISCOLOURATION [None]
  - INJECTION SITE HAEMORRHAGE [None]
  - JOINT DISLOCATION [None]
  - WEIGHT DECREASED [None]
